FAERS Safety Report 25055108 (Version 2)
Quarter: 2025Q1

REPORT INFORMATION
  Report Type: Spontaneous
  Country: GB (occurrence: GB)
  Receive Date: 20250308
  Receipt Date: 20250321
  Transmission Date: 20250409
  Serious: Yes (Other)
  Sender: CELLTRION
  Company Number: GB-CELLTRION INC.-2025GB006595

PATIENT

DRUGS (1)
  1. YUFLYMA [Suspect]
     Active Substance: ADALIMUMAB-AATY
     Indication: Axial spondyloarthritis
     Route: 058
     Dates: start: 202411

REACTIONS (4)
  - Deafness [Unknown]
  - Product communication issue [Unknown]
  - Product dose omission in error [Unknown]
  - Product administration interrupted [Unknown]
